FAERS Safety Report 5945242-9 (Version None)
Quarter: 2008Q4

REPORT INFORMATION
  Report Type: 
  Country: None (occurrence: None)
  Receive Date: 20081107
  Receipt Date: 20081029
  Transmission Date: 20090506
  Serious: Yes (Hospitalization)
  Sender: FDA-Public Use
  Company Number: FR-JNJFOC-20081006680

PATIENT
  Sex: Female

DRUGS (7)
  1. REMINYL LP [Suspect]
     Route: 048
  2. REMINYL LP [Suspect]
     Indication: DEMENTIA ALZHEIMER'S TYPE
     Route: 048
  3. EFFEXOR [Suspect]
     Route: 048
  4. EFFEXOR [Suspect]
     Indication: AFFECTIVE DISORDER
     Route: 048
  5. RISPERDAL [Concomitant]
  6. AMLOD [Concomitant]
     Route: 048
  7. KARDEGIC [Concomitant]
     Route: 048

REACTIONS (6)
  - DISORIENTATION [None]
  - ENCEPHALOPATHY [None]
  - FALL [None]
  - MOTOR DYSFUNCTION [None]
  - PSYCHOMOTOR HYPERACTIVITY [None]
  - SOMNOLENCE [None]
